FAERS Safety Report 21895262 (Version 2)
Quarter: 2023Q1

REPORT INFORMATION
  Report Type: Report from Study
  Country: EG (occurrence: EG)
  Receive Date: 20230123
  Receipt Date: 20230201
  Transmission Date: 20230417
  Serious: Yes (Other)
  Sender: FDA-Public Use
  Company Number: EG-002147023-NVSC2023EG012950

PATIENT
  Age: 59 Year
  Sex: Female

DRUGS (2)
  1. HYRIMOZ [Suspect]
     Active Substance: ADALIMUMAB-ADAZ
     Indication: Rheumatoid arthritis
     Dosage: 40 MG, EVERY 15 DAYS (IN HER LEG)
     Route: 058
     Dates: start: 20221028, end: 20221128
  2. HYRIMOZ [Suspect]
     Active Substance: ADALIMUMAB-ADAZ
     Dosage: 40 MG, EVERY 15 DAYS
     Route: 058
     Dates: start: 20230118

REACTIONS (4)
  - Gastric ulcer [Not Recovered/Not Resolved]
  - Bone pain [Recovering/Resolving]
  - Fatigue [Recovering/Resolving]
  - Abdominal pain [Not Recovered/Not Resolved]

NARRATIVE: CASE EVENT DATE: 20221128
